FAERS Safety Report 4519879-8 (Version None)
Quarter: 2004Q4

REPORT INFORMATION
  Report Type: 
  Country: None (occurrence: None)
  Receive Date: 20041201
  Receipt Date: 20041201
  Transmission Date: 20050328
  Serious: Yes (Other)
  Sender: FDA-Public Use
  Company Number: None

PATIENT
  Age: 57 Year
  Sex: Female
  Weight: 98.4306 kg

DRUGS (1)
  1. FLUNISOLIDE  29 MCG [Suspect]
     Dosage: 2 X'S DAY

REACTIONS (1)
  - EAR HAEMORRHAGE [None]
